FAERS Safety Report 6287587-1 (Version None)
Quarter: 2009Q3

REPORT INFORMATION
  Report Type: 
  Country: None (occurrence: None)
  Receive Date: 20090727
  Receipt Date: 20090716
  Transmission Date: 20100115
  Serious: Yes (Other)
  Sender: FDA-Public Use
  Company Number: 8049188

PATIENT
  Age: 27 Year
  Sex: Female
  Weight: 70 kg

DRUGS (5)
  1. KEPPRA [Suspect]
     Indication: EPILEPSY
     Dosage: 1750 MG /D PO
     Route: 048
     Dates: start: 20080201
  2. LAMOGINE [Suspect]
     Indication: EPILEPSY
     Dosage: 100 MG 2/D PO
     Route: 048
     Dates: start: 20070101
  3. PREGNAVITE [Concomitant]
  4. ACIDUM FOLICUM [Concomitant]
  5. SELEN [Concomitant]

REACTIONS (4)
  - ABORTION SPONTANEOUS [None]
  - DRUG EXPOSURE DURING PREGNANCY [None]
  - MYOCLONIC EPILEPSY [None]
  - PREGNANCY [None]
